FAERS Safety Report 12399742 (Version 1)
Quarter: 2016Q2

REPORT INFORMATION
  Report Type: Report from Study
  Country: CA (occurrence: CA)
  Receive Date: 20160524
  Receipt Date: 20160524
  Transmission Date: 20160815
  Serious: Yes (Other)
  Sender: FDA-Public Use
  Company Number: CA-HLSUS-2016-CA-000138

PATIENT
  Age: 36 Year
  Sex: Male

DRUGS (1)
  1. CLOZARIL [Suspect]
     Active Substance: CLOZAPINE
     Indication: SCHIZOPHRENIA
     Dosage: 325 MG DAILY
     Route: 048
     Dates: start: 1991

REACTIONS (19)
  - Pancytopenia [Unknown]
  - Neutropenia [Unknown]
  - Rash [Unknown]
  - Tachycardia [Recovered/Resolved]
  - White blood cell count decreased [Unknown]
  - Drug hypersensitivity [None]
  - Weight decreased [Unknown]
  - Psychotic disorder [Unknown]
  - Paranoia [None]
  - Aggression [None]
  - Syncope [Unknown]
  - Treatment noncompliance [Unknown]
  - Infrequent bowel movements [Unknown]
  - Dysphagia [Unknown]
  - Pyrexia [Unknown]
  - Chest pain [Recovered/Resolved]
  - Delusion [None]
  - Weight increased [Unknown]
  - Thrombocytopenia [Unknown]

NARRATIVE: CASE EVENT DATE: 199211
